FAERS Safety Report 6594911-9 (Version None)
Quarter: 2010Q1

REPORT INFORMATION
  Report Type: 
  Country: None (occurrence: None)
  Receive Date: 20100222
  Receipt Date: 20100211
  Transmission Date: 20100710
  Serious: Yes (Hospitalization)
  Sender: FDA-Public Use
  Company Number: CHPA2010US03448

PATIENT
  Age: 11 Year
  Sex: Male

DRUGS (3)
  1. EXCEDRIN (MIGRAINE) [Suspect]
     Dosage: UNK, UNK
  2. IBUPROFEN (ADVIL) [Suspect]
     Dosage: UNK, UNK
  3. DRUG THERAPY NOS [Suspect]
     Dosage: UNK, UNK

REACTIONS (2)
  - DRUG DEPENDENCE [None]
  - REBOUND EFFECT [None]
